FAERS Safety Report 10136447 (Version 2)
Quarter: 2014Q2

REPORT INFORMATION
  Report Type: Report from Study
  Country: US (occurrence: US)
  Receive Date: 20140429
  Receipt Date: 20140627
  Transmission Date: 20141212
  Serious: Yes (Other)
  Sender: FDA-Public Use
  Company Number: US-SA-2014SA052707

PATIENT
  Sex: Male

DRUGS (10)
  1. LANTUS [Suspect]
     Indication: DIABETES MELLITUS
     Route: 065
  2. HUMALOG [Concomitant]
     Dosage: STRENGTH: 10 U DOSE:10 UNIT(S)
  3. METFORMIN [Concomitant]
  4. LISINOPRIL [Concomitant]
  5. SIMVASTATIN [Concomitant]
  6. TAMSULOSIN HYDROCHLORIDE [Concomitant]
  7. FUROSEMIDE [Concomitant]
  8. ALPHAGAN [Concomitant]
  9. FLUTICASONE PROPIONATE [Concomitant]
  10. LATANOPROST [Concomitant]

REACTIONS (6)
  - Sleep apnoea syndrome [Unknown]
  - Hypertension [Unknown]
  - Blood cholesterol increased [Unknown]
  - Insulin resistant diabetes [Unknown]
  - Glaucoma [Unknown]
  - Overweight [Unknown]
